FAERS Safety Report 5126145-9 (Version None)
Quarter: 2006Q3

REPORT INFORMATION
  Report Type: 
  Country: None (occurrence: None)
  Receive Date: 20060823
  Receipt Date: 20060503
  Transmission Date: 20061208
  Serious: Yes (Other)
  Sender: FDA-Public Use
  Company Number: 2006024638

PATIENT
  Age: 70 Year
  Sex: Male
  Weight: 72.5755 kg

DRUGS (4)
  1. NORVASC [Suspect]
     Indication: ILL-DEFINED DISORDER
     Dosage: 5 MG (5 MG,QD), ORAL
     Route: 048
  2. VALIUM [Concomitant]
  3. ASPIRIN [Concomitant]
  4. VITAMIN B12 [Concomitant]

REACTIONS (2)
  - DIPLOPIA [None]
  - VISUAL DISTURBANCE [None]
